FAERS Safety Report 6621892-1 (Version None)
Quarter: 2010Q1

REPORT INFORMATION
  Report Type: 
  Country: None (occurrence: None)
  Receive Date: 20100304
  Receipt Date: 20100217
  Transmission Date: 20100710
  Serious: Yes (Death, Hospitalization)
  Sender: FDA-Public Use
  Company Number: 2010000013

PATIENT
  Age: 60 Year
  Sex: Female

DRUGS (7)
  1. ERLOTINIB HYDROCHLORIDE [Suspect]
     Indication: NON-SMALL CELL LUNG CANCER
     Dosage: (QD), ORAL
     Route: 048
     Dates: start: 20091027, end: 20100207
  2. AZATHIOPRINE [Concomitant]
  3. DEXAMETHASONE TAB [Concomitant]
  4. DILTIAZEM [Concomitant]
  5. ATORVASTATIN CALCIUM [Concomitant]
  6. HYDROXYCHLOROQUINE SULFATE [Concomitant]
  7. RANITIDINE [Concomitant]

REACTIONS (7)
  - DISEASE PROGRESSION [None]
  - HAEMOGLOBIN INCREASED [None]
  - PAIN [None]
  - PLATELET COUNT DECREASED [None]
  - PULMONARY EMBOLISM [None]
  - PULMONARY INFARCTION [None]
  - WHITE BLOOD CELL COUNT INCREASED [None]
